FAERS Safety Report 7175774-X (Version None)
Quarter: 2010Q4

REPORT INFORMATION
  Report Type: 
  Country: None (occurrence: None)
  Receive Date: 20101207
  Receipt Date: 20101124
  Transmission Date: 20110411
  Serious: Yes (Disabling)
  Sender: FDA-Public Use
  Company Number: CTI_01273_2010

PATIENT
  Age: 11 Month
  Sex: Male
  Weight: 8 kg

DRUGS (2)
  1. MEIACT (MEIACT MS) (NOT SPECIFIED) [Suspect]
     Indication: PRODUCT USED FOR UNKNOWN INDICATION
     Dosage: (72 MG ORAL)
     Route: 048
     Dates: start: 20101115, end: 20101117
  2. MEIACT (MEIACT MS) (NOT SPECIFIED) [Suspect]
     Indication: PRODUCT USED FOR UNKNOWN INDICATION
     Dosage: (72 MG ORAL)
     Route: 048
     Dates: start: 20101120, end: 20101120

REACTIONS (3)
  - PIGMENTATION DISORDER [None]
  - RASH [None]
  - RESPIRATORY SYNCYTIAL VIRUS INFECTION [None]
